FAERS Safety Report 18216656 (Version 3)
Quarter: 2020Q3

REPORT INFORMATION
  Report Type: Spontaneous
  Country: CN (occurrence: CN)
  Receive Date: 20200901
  Receipt Date: 20200930
  Transmission Date: 20201103
  Serious: Yes (Death, Life-Threatening)
  Sender: FDA-Public Use
  Company Number: CN-BAXTER-2020BAX017701

PATIENT
  Age: 57 Year
  Sex: Female
  Weight: 64 kg

DRUGS (39)
  1. THYMOGLOBULINE [Suspect]
     Active Substance: LAPINE T-LYMPHOCYTE IMMUNE GLOBULIN
     Indication: DRUG THERAPY
     Dosage: ROUTE: INTRA?PUMP INJECTION, THYMOGLOBULINE 150 MG + 0.9% SODIUM CHLORIDE INJECTION 500 ML
     Route: 042
     Dates: start: 20200711, end: 20200712
  2. THYMOGLOBULINE [Suspect]
     Active Substance: LAPINE T-LYMPHOCYTE IMMUNE GLOBULIN
     Indication: DRUG THERAPY
     Dosage: ROUTE: INTRA?PUMP INJECTION,  THYMOGLOBULINE 2.5 MG + 0.9% SODIUM CHLORIDE INJECTION 250 ML
     Route: 042
     Dates: start: 20200710, end: 20200710
  3. CLARITYNE [Concomitant]
     Active Substance: LORATADINE
     Indication: ANTIALLERGIC THERAPY
     Dosage: TABLET
     Route: 048
     Dates: start: 20200705, end: 20200713
  4. METHYLPREDNISOLONE SODIUM SUCCINATE. [Concomitant]
     Active Substance: METHYLPREDNISOLONE SODIUM SUCCINATE
     Indication: PNEUMONIA
     Route: 042
     Dates: start: 20200715, end: 20200715
  5. FAT?SOLUBLE VITAMIN FOR INJECTION (II) [Concomitant]
     Active Substance: VITAMINS
     Indication: VITAMIN SUPPLEMENTATION
     Dosage: DOSE: 1 A PIECE OF
     Route: 041
     Dates: start: 20200711, end: 20200713
  6. SODIUM CHLORIDE. [Concomitant]
     Active Substance: SODIUM CHLORIDE
     Route: 041
     Dates: start: 20200708, end: 20200715
  7. SODIUM CHLORIDE. [Concomitant]
     Active Substance: SODIUM CHLORIDE
     Route: 041
     Dates: start: 20200710, end: 20200715
  8. SODIUM CHLORIDE. [Concomitant]
     Active Substance: SODIUM CHLORIDE
     Route: 041
     Dates: start: 20200709, end: 20200712
  9. SODIUM CHLORIDE. [Concomitant]
     Active Substance: SODIUM CHLORIDE
     Dosage: ROUTE: INTRA?PUMP INJECTION, THYMOGLOBULIN 150 MG + 0.9% SODIUM CHLORIDE 500 ML
     Route: 042
     Dates: start: 20200711, end: 20200712
  10. GLUCOSE [Concomitant]
     Active Substance: DEXTROSE
     Indication: MEDICATION DILUTION
     Route: 042
     Dates: start: 20200711, end: 20200715
  11. GLUCOSE [Concomitant]
     Active Substance: DEXTROSE
     Route: 041
     Dates: start: 20200708, end: 20200710
  12. FUROSEMIDE. [Concomitant]
     Active Substance: FUROSEMIDE
     Indication: POLYURIA
     Route: 030
     Dates: start: 20200704, end: 20200711
  13. CRAVIT [Concomitant]
     Active Substance: LEVOFLOXACIN
     Indication: PNEUMONIA
     Dosage: TABLET
     Route: 048
     Dates: start: 20200702, end: 20200710
  14. CALCIUM GLUCONATE. [Concomitant]
     Active Substance: CALCIUM GLUCONATE
     Indication: ANTIALLERGIC THERAPY
     Route: 042
     Dates: start: 20200711, end: 20200715
  15. METHYLPREDNISOLONE SODIUM SUCCINATE. [Concomitant]
     Active Substance: METHYLPREDNISOLONE SODIUM SUCCINATE
     Indication: ANTIINFLAMMATORY THERAPY
     Route: 041
     Dates: start: 20200709, end: 20200712
  16. SODIUM CHLORIDE. [Concomitant]
     Active Substance: SODIUM CHLORIDE
     Route: 041
     Dates: start: 20200714, end: 20200715
  17. SODIUM CHLORIDE. [Concomitant]
     Active Substance: SODIUM CHLORIDE
     Dosage: ROUTE: INTRA?PUMP INJECTION
     Route: 050
     Dates: start: 20200715, end: 20200715
  18. SODIUM CHLORIDE. [Concomitant]
     Active Substance: SODIUM CHLORIDE
     Indication: MEDICATION DILUTION
     Dosage: ROUTE: INTRA?PUMP INJECTION
     Route: 050
     Dates: start: 20200704, end: 20200705
  19. SODIUM CHLORIDE. [Concomitant]
     Active Substance: SODIUM CHLORIDE
     Indication: MEDICATION DILUTION
     Route: 042
     Dates: start: 20200703, end: 20200705
  20. GLUCOSE [Concomitant]
     Active Substance: DEXTROSE
     Dosage: ROUTE: INTRA?PUMP INJECTION, ENDOXAN 3 G + 5% GLUCOSE 250 ML
     Route: 041
     Dates: start: 20200709, end: 20200710
  21. MEDIUM AND LONG CHAIN FAT EMULSION INJECTION (C8?24) [Suspect]
     Active Substance: GLYCERIN\MEDIUM-CHAIN TRIGLYCERIDES\PHOSPHOLIPID\SOYBEAN OIL
     Indication: NUTRITIONAL SUPPLEMENTATION
     Route: 041
     Dates: start: 20200711, end: 20200713
  22. SANDIMMUNE [Concomitant]
     Active Substance: CYCLOSPORINE
     Indication: IMMUNOSUPPRESSION
     Route: 041
     Dates: start: 20200708, end: 20200715
  23. SODIUM CHLORIDE. [Concomitant]
     Active Substance: SODIUM CHLORIDE
     Dosage: ROUTE: INTRA?PUMP INJECTION, THYMOGLOBULIN 2.5 MG + 0.9% SODIUM CHLORIDE 250 ML
     Route: 042
     Dates: start: 20200710, end: 20200710
  24. ENDOXAN [Suspect]
     Active Substance: CYCLOPHOSPHAMIDE
     Indication: ACUTE MYELOID LEUKAEMIA
     Dosage: ROUTE: INTRA?PUMP INJECTION, ENDOXAN 3 G + 5% GLUCOSE 250 ML
     Route: 041
     Dates: start: 20200709, end: 20200710
  25. CYTOSAR [Suspect]
     Active Substance: CYTARABINE
     Dosage: ROUTE: INTRA?PUMP INJECTION
     Route: 050
     Dates: start: 20200704, end: 20200705
  26. VORICONAZOLE. [Concomitant]
     Active Substance: VORICONAZOLE
     Indication: PNEUMONIA
     Dosage: TABLETS
     Route: 048
     Dates: start: 20200624, end: 20200710
  27. GANCICLOVIR. [Concomitant]
     Active Substance: GANCICLOVIR
     Indication: ANTIVIRAL TREATMENT
     Route: 041
     Dates: start: 20200703, end: 20200713
  28. CYTOSAR [Suspect]
     Active Substance: CYTARABINE
     Indication: CHEMOTHERAPY
     Dosage: ROUTE: INTRA?PUMP INJECTION
     Route: 050
     Dates: start: 20200704, end: 20200705
  29. POTASSIUM CHLORIDE. [Concomitant]
     Active Substance: POTASSIUM CHLORIDE
     Indication: MINERAL SUPPLEMENTATION
     Dosage: ROUTE: INTRA?PUMP INJECTION
     Route: 050
     Dates: start: 20200715, end: 20200715
  30. THYMOGLOBULINE [Suspect]
     Active Substance: LAPINE T-LYMPHOCYTE IMMUNE GLOBULIN
     Indication: ACUTE MYELOID LEUKAEMIA
     Dosage: ROUTE: INTRA?PUMP INJECTION, THYMOGLOBULINE 172.5 MG + 0.9% SODIUM CHLORIDE INJECTION 500 ML
     Route: 042
     Dates: start: 20200710, end: 20200710
  31. MYCOPHENOLATE MOFETIL. [Concomitant]
     Active Substance: MYCOPHENOLATE MOFETIL
     Indication: IMMUNOSUPPRESSION
     Dosage: TABLET
     Route: 048
     Dates: start: 20200709, end: 20200715
  32. POTASSIUM CHLORIDE. [Concomitant]
     Active Substance: POTASSIUM CHLORIDE
     Route: 041
     Dates: start: 20200708, end: 20200710
  33. VORICONAZOLE. [Concomitant]
     Active Substance: VORICONAZOLE
     Indication: PNEUMONIA
     Route: 041
     Dates: start: 20200710, end: 20200715
  34. GANCICLOVIR. [Concomitant]
     Active Substance: GANCICLOVIR
     Indication: PNEUMONIA
     Route: 041
     Dates: start: 20200714, end: 20200715
  35. METHYLPREDNISOLONE SODIUM SUCCINATE. [Concomitant]
     Active Substance: METHYLPREDNISOLONE SODIUM SUCCINATE
     Route: 042
     Dates: start: 20200703, end: 20200705
  36. SODIUM CHLORIDE. [Concomitant]
     Active Substance: SODIUM CHLORIDE
     Route: 041
     Dates: start: 20200703, end: 20200713
  37. SODIUM CHLORIDE. [Concomitant]
     Active Substance: SODIUM CHLORIDE
     Dosage: ROUTE: INTRA?PUMP INJECTION
     Route: 050
     Dates: start: 20200704, end: 20200705
  38. SODIUM CHLORIDE. [Concomitant]
     Active Substance: SODIUM CHLORIDE
     Dosage: ROUTE: INTRA?PUMP INJECTION, THYMOGLOBULIN 172.5 MG + 0.9% SODIUM CHLORIDE 500 ML
     Route: 042
     Dates: start: 20200710, end: 20200710
  39. SODIUM CHLORIDE. [Concomitant]
     Active Substance: SODIUM CHLORIDE
     Route: 042
     Dates: start: 20200715, end: 20200715

REACTIONS (7)
  - Myelosuppression [Fatal]
  - Blood bilirubin increased [Fatal]
  - Pyrexia [Fatal]
  - Cardiac failure acute [Fatal]
  - Renal impairment [Fatal]
  - Arrhythmia [Fatal]
  - Musculoskeletal pain [Fatal]

NARRATIVE: CASE EVENT DATE: 20200714
